FAERS Safety Report 20586548 (Version 1)
Quarter: 2022Q1

REPORT INFORMATION
  Report Type: Report from Study
  Country: US (occurrence: US)
  Receive Date: 20220313
  Receipt Date: 20220313
  Transmission Date: 20220423
  Serious: Yes (Other)
  Sender: FDA-Public Use
  Company Number: US-AUROBINDO-AUR-APL-2022-007658

PATIENT

DRUGS (1)
  1. EPTIFIBATIDE [Suspect]
     Active Substance: EPTIFIBATIDE
     Indication: Ischaemic stroke
     Dosage: UNK
     Route: 042

REACTIONS (1)
  - Subarachnoid haemorrhage [Unknown]
